FAERS Safety Report 13774825 (Version 1)
Quarter: 2017Q3

REPORT INFORMATION
  Report Type: Spontaneous
  Country: BR (occurrence: BR)
  Receive Date: 20170720
  Receipt Date: 20170720
  Transmission Date: 20171127
  Serious: Yes (Other)
  Sender: FDA-Public Use
  Company Number: PHHY2017BR102058

PATIENT
  Age: 85 Year
  Sex: Male

DRUGS (1)
  1. LEVOFLOXACIN. [Suspect]
     Active Substance: LEVOFLOXACIN
     Indication: LUNG INFECTION
     Dosage: 500 MG, QD
     Route: 065
     Dates: start: 20170630, end: 20170630

REACTIONS (8)
  - Syncope [Unknown]
  - Hallucination [Unknown]
  - Confusional state [Unknown]
  - Insomnia [Unknown]
  - Retching [Unknown]
  - Anxiety [Unknown]
  - Loss of consciousness [Unknown]
  - Tremor [Unknown]
